FAERS Safety Report 4313239-0 (Version None)
Quarter: 2004Q1

REPORT INFORMATION
  Report Type: 
  Country: None (occurrence: None)
  Receive Date: 20040304
  Receipt Date: 20040220
  Transmission Date: 20041129
  Serious: Yes (Hospitalization)
  Sender: FDA-Public Use
  Company Number: US067374

PATIENT
  Age: 47 Year
  Sex: Female

DRUGS (4)
  1. ENBREL [Suspect]
     Indication: RHEUMATOID ARTHRITIS
     Dosage: 25 MG, 2 IN 1 WEEKS, SC
     Route: 058
     Dates: start: 20021018, end: 20040109
  2. AMLODIPINE AND BENAZEPRIL HYDROCHLORIDE [Concomitant]
  3. PREDNISONE [Concomitant]
  4. VICODIN [Concomitant]

REACTIONS (5)
  - ADRENOCORTICAL INSUFFICIENCY ACUTE [None]
  - FEMUR FRACTURE [None]
  - POST PROCEDURAL COMPLICATION [None]
  - STRESS FRACTURE [None]
  - THROMBOSIS [None]
